FAERS Safety Report 23777449 (Version 4)
Quarter: 2024Q4

REPORT INFORMATION
  Report Type: Spontaneous
  Country: DE (occurrence: DE)
  Receive Date: 20240424
  Receipt Date: 20241009
  Transmission Date: 20250115
  Serious: Yes (Hospitalization, Other)
  Sender: ASTELLAS
  Company Number: DE-ASTELLAS-2024US011656

PATIENT
  Age: 58 Year
  Sex: Male

DRUGS (5)
  1. XTANDI [Suspect]
     Active Substance: ENZALUTAMIDE
     Indication: Hormone-dependent prostate cancer
     Dosage: 4-0-0
     Route: 048
     Dates: start: 20210205, end: 20220112
  2. XTANDI [Suspect]
     Active Substance: ENZALUTAMIDE
     Dosage: 2-0-0, REDUCED DOSE
     Route: 048
     Dates: start: 20220113, end: 202406
  3. TAMSULOSIN [Concomitant]
     Active Substance: TAMSULOSIN
     Indication: Product used for unknown indication
     Route: 065
  4. TRENANTONE [Concomitant]
     Active Substance: LEUPROLIDE ACETATE
     Indication: Product used for unknown indication
     Dosage: 3 MONTHLY
     Route: 058
  5. ASPIRIN [Concomitant]
     Active Substance: ASPIRIN
     Indication: Product used for unknown indication
     Dosage: 100 UNKNOWN UNIT (1-0-0)
     Route: 065

REACTIONS (3)
  - Pulmonary embolism [Recovering/Resolving]
  - Thrombosis [Unknown]
  - Lymphocele [Recovering/Resolving]

NARRATIVE: CASE EVENT DATE: 20220413
